FAERS Safety Report 17564230 (Version 1)
Quarter: 2020Q1

REPORT INFORMATION
  Report Type: Spontaneous
  Country: FR (occurrence: FR)
  Receive Date: 20200320
  Receipt Date: 20200320
  Transmission Date: 20200409
  Serious: Yes (Other)
  Sender: FDA-Public Use
  Company Number: FR-ROCHE-2571151

PATIENT
  Age: 11 Year
  Sex: Male

DRUGS (1)
  1. SOMATROPIN. [Suspect]
     Active Substance: SOMATROPIN
     Indication: SMALL FOR DATES BABY
     Route: 058
     Dates: start: 20120215

REACTIONS (2)
  - Off label use [Unknown]
  - Ocular hypertension [Recovered/Resolved]

NARRATIVE: CASE EVENT DATE: 20160401
